FAERS Safety Report 9436251 (Version 1)
Quarter: 2013Q3

REPORT INFORMATION
  Report Type: Spontaneous
  Country: US (occurrence: US)
  Receive Date: 20130802
  Receipt Date: 20130802
  Transmission Date: 20140515
  Serious: Yes (Other)
  Sender: FDA-Public Use
  Company Number: US-ASTRAZENECA-2013SE56789

PATIENT
  Sex: Male
  Weight: 184.6 kg

DRUGS (2)
  1. BRILINTA [Suspect]
     Indication: STENT PLACEMENT
     Route: 048
     Dates: start: 201307, end: 201307
  2. ASPIRIN [Concomitant]
     Indication: STENT PLACEMENT
     Dates: start: 201307

REACTIONS (1)
  - Thrombosis in device [Unknown]
